FAERS Safety Report 7077648-1 (Version None)
Quarter: 2010Q4

REPORT INFORMATION
  Report Type: 
  Country: None (occurrence: None)
  Receive Date: 20101101
  Receipt Date: 20101018
  Transmission Date: 20110411
  Serious: Yes (Hospitalization)
  Sender: FDA-Public Use
  Company Number: IT-AMGEN-ITASP2010000411

PATIENT

DRUGS (4)
  1. NPLATE [Suspect]
     Indication: IDIOPATHIC THROMBOCYTOPENIC PURPURA
     Dosage: 9 A?G/KG, UNK
     Route: 058
     Dates: start: 20100421, end: 20101001
  2. PREDNISONE [Concomitant]
     Dosage: 5 MG, UNK
     Dates: start: 20100421, end: 20101001
  3. IMMUNE GLOBULIN NOS [Concomitant]
  4. VINCRISTINE [Concomitant]

REACTIONS (3)
  - HAEMORRHAGE [None]
  - HELLP SYNDROME [None]
  - THROMBOCYTOSIS [None]
